FAERS Safety Report 9120547 (Version 2)
Quarter: 2013Q1

REPORT INFORMATION
  Report Type: Spontaneous
  Country: NL (occurrence: NL)
  Receive Date: 20130226
  Receipt Date: 20130308
  Transmission Date: 20140127
  Serious: Yes (Hospitalization)
  Sender: FDA-Public Use
  Company Number: NL-B.I. PHARMACEUTICALS,INC./RIDGEFIELD-2013-NL-00097NL

PATIENT
  Sex: Male
  Weight: 80 kg

DRUGS (7)
  1. PRADAXA [Suspect]
     Indication: ATRIAL FIBRILLATION
     Dosage: 300 MG
  2. METOPROLOL [Concomitant]
     Route: 048
  3. CORICIDIN [Concomitant]
     Route: 048
  4. PANTOZOL [Concomitant]
     Route: 048
  5. SPIRONOLACTON [Concomitant]
     Route: 048
  6. MONOCEDOCARD RETARD [Concomitant]
     Route: 048
  7. PHYSIOTHERAPY [Concomitant]

REACTIONS (4)
  - Skull fracture [Recovered/Resolved with Sequelae]
  - Fall [Unknown]
  - Haemorrhage [Unknown]
  - Dizziness [Unknown]
